FAERS Safety Report 15729339 (Version 2)
Quarter: 2019Q1

REPORT INFORMATION
  Report Type: Spontaneous
  Country: DE (occurrence: DE)
  Receive Date: 20181217
  Receipt Date: 20190308
  Transmission Date: 20190417
  Serious: Yes (Death)
  Sender: FDA-Public Use
  Company Number: DE-ELI_LILLY_AND_COMPANY-DE201812004946

PATIENT
  Sex: Male

DRUGS (9)
  1. PACLITAXEL. [Concomitant]
     Active Substance: PACLITAXEL
     Indication: GASTRIC CANCER
     Dosage: 160 MG, CYCLICAL
     Route: 065
  2. CYRAMZA [Suspect]
     Active Substance: RAMUCIRUMAB
     Dosage: 600 MG, CYCLICAL
     Route: 065
  3. LAXOBERAL [Concomitant]
     Active Substance: SODIUM PICOSULFATE
     Dosage: 0-0-0-15
  4. CYRAMZA [Suspect]
     Active Substance: RAMUCIRUMAB
     Indication: GASTRIC CANCER
     Dosage: 780 MG, CYCLICAL
     Route: 065
  5. PANTOZOL [Concomitant]
     Active Substance: PANTOPRAZOLE SODIUM
     Dosage: 1-0-1
  6. PACLITAXEL. [Concomitant]
     Active Substance: PACLITAXEL
     Dosage: 135 MG, CYCLICAL
     Route: 065
  7. DELIX [RAMIPRIL] [Concomitant]
     Indication: BLOOD PRESSURE MEASUREMENT
     Dosage: 1-0-1
  8. BELOC ZOK [Concomitant]
     Active Substance: METOPROLOL SUCCINATE
     Indication: BLOOD PRESSURE MEASUREMENT
     Dosage: 1-0-1
  9. SIMVASTATIN. [Concomitant]
     Active Substance: SIMVASTATIN
     Dosage: 0-0-1

REACTIONS (3)
  - Hypertension [Unknown]
  - General physical health deterioration [Unknown]
  - Posterior reversible encephalopathy syndrome [Fatal]
